FAERS Safety Report 20704768 (Version 2)
Quarter: 2022Q2

REPORT INFORMATION
  Report Type: Spontaneous
  Country: JP (occurrence: JP)
  Receive Date: 20220413
  Receipt Date: 20220426
  Transmission Date: 20220720
  Serious: Yes (Hospitalization)
  Sender: FDA-Public Use
  Company Number: JP-TEVA-2022-JP-2025866

PATIENT
  Age: 91 Year
  Sex: Female
  Weight: 29.3 kg

DRUGS (4)
  1. HYDROCORTISONE [Suspect]
     Active Substance: HYDROCORTISONE
     Indication: Hyperthyroidism
     Route: 042
  2. POTASSIUM IODIDE [Suspect]
     Active Substance: POTASSIUM IODIDE
     Indication: Hyperthyroidism
     Route: 065
  3. POTASSIUM IODIDE [Suspect]
     Active Substance: POTASSIUM IODIDE
     Indication: Thyrotoxic crisis
  4. LANDIOLOL [Suspect]
     Active Substance: LANDIOLOL
     Indication: Tachycardia
     Dosage: MAXIMUM DOSE
     Route: 065

REACTIONS (3)
  - Hyperthyroidism [Unknown]
  - Stress cardiomyopathy [Unknown]
  - Drug ineffective [Unknown]
